FAERS Safety Report 16688764 (Version 1)
Quarter: 2019Q3

REPORT INFORMATION
  Report Type: Spontaneous
  Country: US (occurrence: US)
  Receive Date: 20190809
  Receipt Date: 20190809
  Transmission Date: 20191004
  Serious: No
  Sender: FDA-Public Use
  Company Number: US-OXFORD PHARMACEUTICALS, LLC-2018OXF00111

PATIENT
  Sex: Female

DRUGS (1)
  1. SERTRALINE HYDROCHLORIDE. [Suspect]
     Active Substance: SERTRALINE HYDROCHLORIDE

REACTIONS (2)
  - Drug hypersensitivity [Unknown]
  - Vomiting [Unknown]
